FAERS Safety Report 14893142 (Version 1)
Quarter: 2018Q2

REPORT INFORMATION
  Report Type: Spontaneous
  Country: GB (occurrence: GB)
  Receive Date: 20180514
  Receipt Date: 20180514
  Transmission Date: 20180711
  Serious: Yes (Hospitalization)
  Sender: FDA-Public Use
  Company Number: GB-NOVOPROD-598948

PATIENT
  Age: 79 Year
  Sex: Female
  Weight: 51 kg

DRUGS (1)
  1. NOVORAPID [Suspect]
     Active Substance: INSULIN ASPART
     Indication: PRODUCT USED FOR UNKNOWN INDICATION
     Dosage: 21 U, QD (3 X DAILY,TOTAL 21 UNITS)
     Route: 065

REACTIONS (2)
  - Blood glucose decreased [Unknown]
  - Fall [Unknown]
